FAERS Safety Report 16606726 (Version 1)
Quarter: 2019Q3

REPORT INFORMATION
  Report Type: Spontaneous
  Country: MX (occurrence: MX)
  Receive Date: 20190722
  Receipt Date: 20190722
  Transmission Date: 20191004
  Serious: Yes (Other)
  Sender: FDA-Public Use
  Company Number: MX-SUN PHARMACEUTICAL INDUSTRIES LTD-2018R1-190065

PATIENT
  Age: 46 Year
  Sex: Female

DRUGS (4)
  1. CYCLOPHOSPHAMIDE. [Concomitant]
     Active Substance: CYCLOPHOSPHAMIDE
     Indication: CHEMOTHERAPY
     Dosage: UNK
     Route: 065
  2. DOXORUBICIN [Suspect]
     Active Substance: DOXORUBICIN
     Indication: CHEMOTHERAPY
     Dosage: UNK
     Route: 065
  3. DOCETAXEL. [Suspect]
     Active Substance: DOCETAXEL
     Indication: CHEMOTHERAPY
     Dosage: UNK
     Route: 065
  4. 5-FLUOROURACIL [Suspect]
     Active Substance: FLUOROURACIL
     Indication: CHEMOTHERAPY
     Dosage: UNK
     Route: 065

REACTIONS (3)
  - Palmar-plantar erythrodysaesthesia syndrome [Recovering/Resolving]
  - Skin swelling [Recovering/Resolving]
  - Hyperthermia [Recovering/Resolving]
